FAERS Safety Report 12393253 (Version 1)
Quarter: 2016Q2

REPORT INFORMATION
  Report Type: Spontaneous
  Country: US (occurrence: None)
  Receive Date: 20160520
  Receipt Date: 20160520
  Transmission Date: 20160815
  Serious: Yes (Disabling)
  Sender: FDA-Public Use
  Company Number: None

PATIENT
  Age: 51 Year
  Sex: Female
  Weight: 78.93 kg

DRUGS (12)
  1. METFORMIN [Concomitant]
     Active Substance: METFORMIN HYDROCHLORIDE
  2. VITAMINS [Concomitant]
     Active Substance: VITAMINS
  3. CHLOROTRIMETON [Concomitant]
  4. PRILOSEC [Concomitant]
     Active Substance: OMEPRAZOLE MAGNESIUM
  5. DOXEPIN [Concomitant]
     Active Substance: DOXEPIN
  6. CALCIUM [Concomitant]
     Active Substance: CALCIUM
  7. TAXOL [Concomitant]
     Active Substance: PACLITAXEL
  8. PAXIL [Concomitant]
     Active Substance: PAROXETINE HYDROCHLORIDE
  9. CARBOPLATIN. [Concomitant]
     Active Substance: CARBOPLATIN
  10. MULTI VITAMIN [Concomitant]
     Active Substance: VITAMINS
  11. ZOFRAN [Concomitant]
     Active Substance: ONDANSETRON HYDROCHLORIDE
  12. NEURONTIN [Suspect]
     Active Substance: GABAPENTIN
     Indication: NEUROPATHY PERIPHERAL
     Route: 048
     Dates: start: 20160505, end: 20160515

REACTIONS (8)
  - Anxiety [None]
  - Hot flush [None]
  - Fatigue [None]
  - Depression [None]
  - Somnolence [None]
  - Agitation [None]
  - Drug monitoring procedure not performed [None]
  - Withdrawal syndrome [None]

NARRATIVE: CASE EVENT DATE: 20160516
